FAERS Safety Report 19008751 (Version 1)
Quarter: 2021Q1

REPORT INFORMATION
  Report Type: Other
  Country: DE (occurrence: DE)
  Receive Date: 20210315
  Receipt Date: 20210315
  Transmission Date: 20210420
  Serious: Yes (Hospitalization, Other)
  Sender: FDA-Public Use
  Company Number: DE-ASTELLAS-2021US008755

PATIENT
  Age: 20 Month
  Sex: Male

DRUGS (7)
  1. URSOFALK [Concomitant]
     Active Substance: URSODIOL
     Indication: LIVER TRANSPLANT
     Dosage: 160 MG, ONCE DAILY (2 SEPARATED DOSES)
     Route: 048
     Dates: start: 201712
  2. MODIGRAF [Suspect]
     Active Substance: TACROLIMUS
     Indication: LIVER TRANSPLANT
     Dosage: 0.4?0?0.2MG, TWICE DAILY
     Route: 048
     Dates: start: 201712
  3. MODIGRAF [Suspect]
     Active Substance: TACROLIMUS
     Dosage: 0.1?0?0.1 MG, TWICE DAILY
     Route: 065
  4. L?CITRULLINE [Concomitant]
     Active Substance: CITRULLINE
     Indication: LIVER TRANSPLANT
     Dosage: 600?300?600MG, THRICE DAILY
     Route: 048
     Dates: start: 201708
  5. L?ARGININE [ARGININE] [Concomitant]
     Active Substance: ARGININE
     Indication: LIVER TRANSPLANT
     Dosage: 1000 MG, ONCE DAILY ( 2 SEPARATED DOSES)
     Route: 048
     Dates: start: 201708
  6. COLECALCIFEROL [Concomitant]
     Active Substance: CHOLECALCIFEROL
     Indication: PRODUCT SUBSTITUTION
     Dosage: 500 IU, ONCE DAILY EVERY DAYS
     Route: 048
     Dates: start: 201708
  7. VALCYTE [Concomitant]
     Active Substance: VALGANCICLOVIR HYDROCHLORIDE
     Indication: CHRONIC ACTIVE EPSTEIN-BARR VIRUS INFECTION
     Dosage: 150 MG, ONCE DAILY  EVERY DAYS
     Route: 048
     Dates: start: 201712

REACTIONS (6)
  - Pyrexia [Recovered/Resolved]
  - Dehydration [Recovered/Resolved]
  - Gastroenteritis rotavirus [Recovered/Resolved]
  - Fluid intake reduced [Recovered/Resolved]
  - Hypophagia [Recovered/Resolved]
  - Vomiting [Recovered/Resolved]

NARRATIVE: CASE EVENT DATE: 20190426
